FAERS Safety Report 7290241-0 (Version None)
Quarter: 2011Q1

REPORT INFORMATION
  Report Type: 
  Country: None (occurrence: None)
  Receive Date: 20110214
  Receipt Date: 20110203
  Transmission Date: 20110831
  Serious: Yes (Hospitalization)
  Sender: FDA-Public Use
  Company Number: US-ASTRAZENECA-2011SE06366

PATIENT
  Age: 50 Year
  Sex: Male

DRUGS (1)
  1. CRESTOR [Suspect]
     Route: 048

REACTIONS (4)
  - DRUG DOSE OMISSION [None]
  - LIMB CRUSHING INJURY [None]
  - PANCREATITIS [None]
  - LOWER LIMB FRACTURE [None]
